FAERS Safety Report 17290030 (Version 2)
Quarter: 2020Q1

REPORT INFORMATION
  Report Type: Report from Study
  Country: US (occurrence: US)
  Receive Date: 20200120
  Receipt Date: 20200122
  Transmission Date: 20200409
  Serious: No
  Sender: FDA-Public Use
  Company Number: NVSC2020US009906

PATIENT
  Age: 76 Year

DRUGS (2)
  1. TAFINLAR [Suspect]
     Active Substance: DABRAFENIB MESYLATE
     Indication: COLON CANCER
     Route: 048
  2. MEKINIST [Suspect]
     Active Substance: TRAMETINIB DIMETHYL SULFOXIDE
     Indication: COLON CANCER
     Route: 048
     Dates: start: 20191120

REACTIONS (8)
  - Erythema [Unknown]
  - Hypersensitivity [Unknown]
  - Dry skin [Unknown]
  - Rash macular [Unknown]
  - Skin exfoliation [Unknown]
  - Swelling face [Unknown]
  - Stomatitis [Unknown]
  - Product use in unapproved indication [Unknown]
